FAERS Safety Report 7242997-0 (Version None)
Quarter: 2011Q1

REPORT INFORMATION
  Report Type: 
  Country: None (occurrence: None)
  Receive Date: 20110125
  Receipt Date: 20110117
  Transmission Date: 20110831
  Serious: Yes (Death)
  Sender: FDA-Public Use
  Company Number: GB-US-EMD SERONO, INC.-7016516

PATIENT
  Sex: Male
  Weight: 148 kg

DRUGS (11)
  1. NITRAZEPAM [Concomitant]
  2. DESMOPRESSIN ACETATE [Concomitant]
  3. SAIZEN [Suspect]
     Indication: HYPOPITUITARISM
     Route: 058
  4. SUSTANON [Concomitant]
     Indication: HYPOPITUITARISM
     Route: 030
  5. CODEINE [Concomitant]
  6. SUMATRIPTAN [Concomitant]
  7. EPILIM CHRONO [Concomitant]
     Indication: MIGRAINE
  8. ZOPICLONE [Concomitant]
  9. HYDROCORTISONE [Concomitant]
     Indication: HYPOPITUITARISM
     Dosage: 20/10
     Route: 048
  10. LEVOTHYROXINE SODIUM [Concomitant]
     Indication: HYPOPITUITARISM
  11. CITALOPRAM HYDROBROMIDE [Concomitant]

REACTIONS (2)
  - BRAIN OEDEMA [None]
  - GLIOMA [None]
